FAERS Safety Report 7043964-2 (Version None)
Quarter: 2010Q4

REPORT INFORMATION
  Report Type: 
  Country: None (occurrence: None)
  Receive Date: 20101008
  Receipt Date: 20101008
  Transmission Date: 20110411
  Serious: Yes (Hospitalization)
  Sender: FDA-Public Use
  Company Number: None

PATIENT
  Age: 67 Year
  Sex: Male

DRUGS (1)
  1. TRAMADOL HCL [Suspect]
     Indication: PAIN
     Dosage: 100 MG TID PO
     Route: 048
     Dates: start: 20081223, end: 20101007

REACTIONS (9)
  - DIALYSIS [None]
  - DYSARTHRIA [None]
  - GAIT DISTURBANCE [None]
  - HYPERKALAEMIA [None]
  - HYPOPHAGIA [None]
  - INFECTION [None]
  - MUSCLE TWITCHING [None]
  - RENAL FAILURE ACUTE [None]
  - RESPIRATORY FAILURE [None]
